FAERS Safety Report 8558583 (Version 2)
Quarter: 2013Q2

REPORT INFORMATION
  Report Type: Spontaneous
  Country: GB (occurrence: GB)
  Receive Date: 20120511
  Receipt Date: 20130530
  Transmission Date: 20140414
  Serious: Yes (Other)
  Sender: FDA-Public Use
  Company Number: PHHY2012GB039178

PATIENT
  Age: 63 Year
  Sex: Male

DRUGS (2)
  1. CETIRIZINE [Suspect]
     Indication: PRURITUS
     Dosage: 1 MG, DAILY
  2. CETIRIZINE [Suspect]
     Indication: URTICARIA PIGMENTOSA

REACTIONS (6)
  - Tubulointerstitial nephritis [Recovering/Resolving]
  - Lethargy [Unknown]
  - Thirst [Unknown]
  - Nocturia [Unknown]
  - Renal failure acute [Recovering/Resolving]
  - Hypersensitivity [Unknown]
